FAERS Safety Report 11655571 (Version 3)
Quarter: 2016Q1

REPORT INFORMATION
  Report Type: Report from Study
  Country: US (occurrence: US)
  Receive Date: 20151023
  Receipt Date: 20160106
  Transmission Date: 20160525
  Serious: Yes (Other)
  Sender: FDA-Public Use
  Company Number: US-AMGEN-USASL2015107312

PATIENT
  Age: 77 Year
  Sex: Female

DRUGS (2)
  1. ENBREL [Suspect]
     Active Substance: ETANERCEPT
     Indication: RHEUMATOID ARTHRITIS
     Dosage: 50 MG, UNK
     Route: 065
     Dates: start: 2011, end: 2015
  2. METHOTREXATE [Concomitant]
     Active Substance: METHOTREXATE
     Dosage: 4 PILLS, UNK

REACTIONS (6)
  - Condition aggravated [Unknown]
  - Incorrect product storage [Unknown]
  - Liver function test abnormal [Unknown]
  - Device issue [Unknown]
  - Ocular neoplasm [Recovered/Resolved]
  - Choroid melanoma [Recovered/Resolved]

NARRATIVE: CASE EVENT DATE: 20150929
